FAERS Safety Report 18231675 (Version 1)
Quarter: 2020Q3

REPORT INFORMATION
  Report Type: Spontaneous
  Country: US (occurrence: US)
  Receive Date: 20200904
  Receipt Date: 20200904
  Transmission Date: 20201103
  Serious: Yes (Other)
  Sender: FDA-Public Use
  Company Number: NVSC2020US241700

PATIENT
  Age: 3 Year
  Sex: Female

DRUGS (1)
  1. METHYLPREDNISOLONE. [Suspect]
     Active Substance: METHYLPREDNISOLONE
     Indication: MYELITIS TRANSVERSE
     Dosage: 30 MG/KG, QD
     Route: 042

REACTIONS (3)
  - Myelitis transverse [Unknown]
  - Disease progression [Unknown]
  - Product use in unapproved indication [Unknown]
